FAERS Safety Report 8265693-X (Version None)
Quarter: 2012Q2

REPORT INFORMATION
  Report Type: 
  Country: None (occurrence: None)
  Receive Date: 20120403
  Receipt Date: 20120327
  Transmission Date: 20120825
  Serious: Yes (Death, Hospitalization, Other)
  Sender: FDA-Public Use
  Company Number: 131961

PATIENT
  Age: 36 Year
  Sex: Female

DRUGS (2)
  1. LORAZEPAM [Suspect]
     Indication: PRODUCT USED FOR UNKNOWN INDICATION
     Dosage: 10 MG
  2. PROPRANOLOL HCL [Suspect]
     Indication: PRODUCT USED FOR UNKNOWN INDICATION
     Dosage: 300 MG

REACTIONS (26)
  - TOXICITY TO VARIOUS AGENTS [None]
  - MYDRIASIS [None]
  - BLOOD CREATININE INCREASED [None]
  - BRADYCARDIA [None]
  - ELECTROCARDIOGRAM QRS COMPLEX PROLONGED [None]
  - BLOOD PRESSURE DECREASED [None]
  - HYPERREFLEXIA [None]
  - BLOOD CREATINE PHOSPHOKINASE INCREASED [None]
  - VENTRICULAR ARRHYTHMIA [None]
  - THROMBOCYTOPENIA [None]
  - BLOOD GLUCOSE INCREASED [None]
  - MOUTH HAEMORRHAGE [None]
  - MEDICATION ERROR [None]
  - COMA [None]
  - HYPERHIDROSIS [None]
  - BODY TEMPERATURE INCREASED [None]
  - DISSEMINATED INTRAVASCULAR COAGULATION [None]
  - CIRCULATORY COLLAPSE [None]
  - EXTENSOR PLANTAR RESPONSE [None]
  - SINUS TACHYCARDIA [None]
  - MULTIPLE DRUG OVERDOSE INTENTIONAL [None]
  - MUSCLE TWITCHING [None]
  - MUSCLE RIGIDITY [None]
  - OXYGEN SATURATION DECREASED [None]
  - ELECTROCARDIOGRAM QT PROLONGED [None]
  - LEUKOCYTOSIS [None]
